FAERS Safety Report 15407837 (Version 2)
Quarter: 2018Q3

REPORT INFORMATION
  Report Type: Spontaneous
  Country: US (occurrence: US)
  Receive Date: 20180920
  Receipt Date: 20180921
  Transmission Date: 20181010
  Serious: No
  Sender: FDA-Public Use
  Company Number: US-PFIZER INC-2018374543

PATIENT
  Age: 74 Year
  Sex: Female
  Weight: 68.93 kg

DRUGS (1)
  1. XELJANZ XR [Suspect]
     Active Substance: TOFACITINIB CITRATE
     Indication: RHEUMATOID ARTHRITIS
     Dosage: 11 MG, 1X/DAY
     Route: 048
     Dates: start: 20180125

REACTIONS (4)
  - Psoriasis [Not Recovered/Not Resolved]
  - Condition aggravated [Unknown]
  - Weight increased [Recovered/Resolved]
  - Eczema [Not Recovered/Not Resolved]
